FAERS Safety Report 6718620-8 (Version None)
Quarter: 2010Q2

REPORT INFORMATION
  Report Type: 
  Country: None (occurrence: None)
  Receive Date: 20100505
  Receipt Date: 20100427
  Transmission Date: 20101027
  Serious: Yes (Other)
  Sender: FDA-Public Use
  Company Number: 2010JP002552

PATIENT
  Sex: Male

DRUGS (1)
  1. TACROLIMUS [Suspect]
     Indication: RENAL AND PANCREAS TRANSPLANT
     Dosage: 1.5 MG, BID, ORAL
     Route: 048

REACTIONS (3)
  - BLINDNESS UNILATERAL [None]
  - DIABETIC BLINDNESS [None]
  - PRODUCT COLOUR ISSUE [None]
